FAERS Safety Report 6491234-3 (Version None)
Quarter: 2009Q4

REPORT INFORMATION
  Report Type: 
  Country: None (occurrence: None)
  Receive Date: 20091211
  Receipt Date: 20091201
  Transmission Date: 20100525
  Serious: Yes (Disabling, Other)
  Sender: FDA-Public Use
  Company Number: PHEH2006US07269

PATIENT
  Sex: Female

DRUGS (28)
  1. ESTRADERM [Suspect]
     Indication: HORMONE REPLACEMENT THERAPY
     Dosage: 0.1 MG, BIW
     Route: 062
  2. PREMPRO [Suspect]
     Indication: HORMONE REPLACEMENT THERAPY
     Dosage: 0.625/5.0
  3. PREMARIN [Suspect]
     Indication: HORMONE REPLACEMENT THERAPY
     Dosage: UNK MG, UNK
  4. PROVERA [Suspect]
     Indication: HORMONE REPLACEMENT THERAPY
     Dosage: 10 MG, UNK
  5. CYCRIN [Suspect]
     Indication: HORMONE REPLACEMENT THERAPY
  6. ESTRATEST [Suspect]
  7. DELESTROGEN [Suspect]
     Indication: MENSTRUATION IRREGULAR
  8. TRANXENE [Concomitant]
  9. DYAZIDE [Concomitant]
  10. CAPOTEN [Concomitant]
  11. DETROL [Concomitant]
     Indication: URINARY INCONTINENCE
  12. VASOTEC [Concomitant]
  13. PAXIL [Concomitant]
  14. ALPRAZOLAM [Concomitant]
  15. TAMOXIFEN CITRATE [Concomitant]
     Dosage: 20 MG, UNK
  16. COMBIVENT [Concomitant]
  17. LOTREL [Concomitant]
  18. CARDIZEM [Concomitant]
  19. SPIRIVA [Concomitant]
     Dosage: UNK
  20. M.V.I. [Concomitant]
     Dosage: UNK
  21. TORSEMIDE [Concomitant]
     Dosage: UNK
  22. LEXAPRO [Concomitant]
     Dosage: UNK
  23. TIZANIDINE HCL [Concomitant]
     Dosage: UNK
  24. HYDROCODONE [Concomitant]
     Dosage: UNK
  25. ARTHROTEC [Concomitant]
     Dosage: UNK
  26. XANAX [Concomitant]
     Dosage: UNK
  27. TRIAMCINOLONE [Concomitant]
     Dosage: UNK
  28. DIURETICS [Concomitant]
     Indication: OEDEMA
     Dosage: UNK

REACTIONS (34)
  - AMBLYOPIA [None]
  - ANXIETY [None]
  - ASPIRATION BREAST [None]
  - ATELECTASIS [None]
  - BACK PAIN [None]
  - BALANCE DISORDER [None]
  - BIOPSY [None]
  - BLOOD CHOLESTEROL INCREASED [None]
  - BREAST CANCER [None]
  - BREAST CANCER FEMALE [None]
  - BREAST INFECTION [None]
  - BREAST LUMP REMOVAL [None]
  - BREAST MASS [None]
  - BREAST NEOPLASM [None]
  - BRONCHITIS CHRONIC [None]
  - COR PULMONALE [None]
  - DEPRESSION [None]
  - FIBROCYSTIC BREAST DISEASE [None]
  - GRAVITATIONAL OEDEMA [None]
  - HYPOXIA [None]
  - HYSTEROSCOPY [None]
  - LUNG DISORDER [None]
  - MAMMOGRAM ABNORMAL [None]
  - NEUROMYOPATHY [None]
  - OBESITY [None]
  - OPHTHALMOPLEGIA [None]
  - PULMONARY FIBROSIS [None]
  - RESPIRATORY FAILURE [None]
  - SCAR [None]
  - SPINAL OSTEOARTHRITIS [None]
  - SURGERY [None]
  - TOBACCO ABUSE [None]
  - TONSILLAR DISORDER [None]
  - UTERINE DILATION AND CURETTAGE [None]
